FAERS Safety Report 25811746 (Version 1)
Quarter: 2025Q3

REPORT INFORMATION
  Report Type: Spontaneous
  Country: CN (occurrence: CN)
  Receive Date: 20250917
  Receipt Date: 20250917
  Transmission Date: 20251021
  Serious: Yes (Hospitalization)
  Sender: ABBVIE
  Company Number: CN-ABBVIE-6457915

PATIENT
  Age: 47 Year
  Sex: Female
  Weight: 54 kg

DRUGS (7)
  1. VENCLEXTA [Suspect]
     Active Substance: VENETOCLAX
     Indication: Hepatic function abnormal
     Dosage: 400 MILLIGRAM
     Route: 048
     Dates: start: 20250823, end: 20250903
  2. VENCLEXTA [Suspect]
     Active Substance: VENETOCLAX
     Indication: Hepatic function abnormal
     Route: 048
     Dates: start: 20250822, end: 20250822
  3. VENCLEXTA [Suspect]
     Active Substance: VENETOCLAX
     Indication: Hepatic function abnormal
     Dosage: 100 MILLIGRAM
     Route: 048
     Dates: start: 20250821, end: 20250821
  4. AZACITIDINE [Suspect]
     Active Substance: AZACITIDINE
     Indication: Myelodysplastic syndrome
     Dosage: LAST ADMIN DATE: 03 SEP 2025
     Route: 058
     Dates: start: 20250821, end: 20250827
  5. SODIUM CHLORIDE [Concomitant]
     Active Substance: SODIUM CHLORIDE
     Indication: Hepatic function abnormal
     Route: 041
     Dates: start: 20250821, end: 20250903
  6. STERILE WATER FOR INJECTION [Concomitant]
     Active Substance: WATER
     Indication: Nausea
     Route: 058
     Dates: start: 20250821, end: 20250903
  7. CYTARABINE [Suspect]
     Active Substance: CYTARABINE
     Indication: Myelodysplastic syndrome
     Dosage: FOR INJECTION
     Route: 041
     Dates: start: 20250821, end: 20250903

REACTIONS (1)
  - Granulocytopenia [Recovering/Resolving]

NARRATIVE: CASE EVENT DATE: 20250903
